FAERS Safety Report 4897795-X (Version None)
Quarter: 2006Q1

REPORT INFORMATION
  Report Type: 
  Country: None (occurrence: None)
  Receive Date: 20060130
  Receipt Date: 20060130
  Transmission Date: 20060701
  Serious: Yes (Hospitalization)
  Sender: FDA-Public Use
  Company Number: None

PATIENT
  Age: 51 Year
  Sex: Female
  Weight: 75.2971 kg

DRUGS (1)
  1. ARIPIPRAZOLE 30 MG TABLETS BRISTOL-MYERS-SQUIBB [Suspect]
     Indication: BIPOLAR DISORDER
     Dates: start: 20051121, end: 20060119

REACTIONS (3)
  - CONDITION AGGRAVATED [None]
  - MENTAL DISORDER [None]
  - TREATMENT NONCOMPLIANCE [None]
